FAERS Safety Report 9559985 (Version 2)
Quarter: 2013Q4

REPORT INFORMATION
  Report Type: Spontaneous
  Country: US (occurrence: US)
  Receive Date: 20130927
  Receipt Date: 20131002
  Transmission Date: 20140711
  Serious: No
  Sender: FDA-Public Use
  Company Number: US-PFIZER INC-2013273077

PATIENT
  Age: 58 Year
  Sex: Female
  Weight: 99.67 kg

DRUGS (5)
  1. METHOTREXATE SODIUM [Suspect]
  2. SULFASALAZINE [Suspect]
     Dosage: UNK
  3. MACRODANTIN [Suspect]
  4. TYLENOL [Suspect]
  5. PLAQUENIL [Suspect]

REACTIONS (1)
  - Drug hypersensitivity [Unknown]
